FAERS Safety Report 4572991-X (Version None)
Quarter: 2005Q1

REPORT INFORMATION
  Report Type: 
  Country: None (occurrence: None)
  Receive Date: 20050203
  Receipt Date: 20040928
  Transmission Date: 20050727
  Serious: Yes (Other)
  Sender: FDA-Public Use
  Company Number: S04-IRL-03671-01

PATIENT
  Age: 46 Year
  Sex: Female
  Weight: 70 kg

DRUGS (2)
  1. LEXAPRO [Suspect]
     Indication: DEPRESSION
     Dosage: 10 MG QD PO
     Route: 048
     Dates: start: 20040608, end: 20040629
  2. AMITRIPTYLINE HYDROCHLORIDE [Concomitant]

REACTIONS (2)
  - HYPOCHROMIC ANAEMIA [None]
  - MENORRHAGIA [None]
